FAERS Safety Report 4286011-8 (Version None)
Quarter: 2004Q1

REPORT INFORMATION
  Report Type: 
  Country: None (occurrence: None)
  Receive Date: 20040203
  Receipt Date: 20040123
  Transmission Date: 20041129
  Serious: Yes (Life-Threatening)
  Sender: FDA-Public Use
  Company Number: 2004AP00435

PATIENT
  Age: 64 Year
  Sex: Male

DRUGS (5)
  1. XYLOCAINE [Suspect]
     Dates: start: 20030904, end: 20030904
  2. XYLOCAINE VISCOUS [Suspect]
     Dates: start: 20030904, end: 20030904
  3. XYLOCAINE [Suspect]
     Dates: start: 20030904, end: 20030904
  4. BUSCOPAN [Suspect]
     Dates: start: 20030904, end: 20030904
  5. ROHYPNOL [Suspect]
     Dates: start: 20030904, end: 20030904

REACTIONS (4)
  - APALLIC SYNDROME [None]
  - CARDIAC ARREST [None]
  - HYPOXIC ENCEPHALOPATHY [None]
  - SHOCK [None]
